FAERS Safety Report 18419755 (Version 1)
Quarter: 2020Q4

REPORT INFORMATION
  Report Type: Spontaneous
  Country: US (occurrence: US)
  Receive Date: 20201023
  Receipt Date: 20201023
  Transmission Date: 20210114
  Serious: No
  Sender: FDA-Public Use
  Company Number: US-TEVA-2020-US-1841477

PATIENT
  Age: 66 Year
  Sex: Male

DRUGS (4)
  1. TRAZODONE [Concomitant]
     Active Substance: TRAZODONE HYDROCHLORIDE
     Indication: SLEEP DISORDER
     Route: 065
  2. BACLOFEN. [Suspect]
     Active Substance: BACLOFEN
     Indication: DYSPHAGIA
     Dosage: SOMETIMES HE CUTS IN HALF
     Route: 065
  3. PANTOPRAZOLE 40 TEVA [Concomitant]
     Route: 065
     Dates: start: 20200825
  4. BACLOFEN. [Suspect]
     Active Substance: BACLOFEN
     Indication: GASTROOESOPHAGEAL REFLUX DISEASE

REACTIONS (8)
  - Nervousness [Not Recovered/Not Resolved]
  - Agitation [Not Recovered/Not Resolved]
  - Wrong technique in product usage process [Unknown]
  - Expired product administered [Unknown]
  - Tension [Not Recovered/Not Resolved]
  - Product use in unapproved indication [Unknown]
  - Somnolence [Unknown]
  - Off label use [Unknown]
